FAERS Safety Report 21785684 (Version 1)
Quarter: 2022Q4

REPORT INFORMATION
  Report Type: Spontaneous
  Country: US (occurrence: US)
  Receive Date: 20221227
  Receipt Date: 20221227
  Transmission Date: 20230112
  Serious: No
  Sender: FDA-Public Use
  Company Number: US-BAUSCHBL-2022BNL003002

PATIENT
  Age: 63 Year
  Sex: Female

DRUGS (3)
  1. LUMIFY [Suspect]
     Active Substance: BRIMONIDINE TARTRATE
     Indication: Ocular hyperaemia
     Dosage: ONE DROP INTO BOTH EYE AS NEEDED (USUALLY ONCE TO TWICE DAILY)
     Route: 047
     Dates: end: 20221210
  2. LUMIFY [Suspect]
     Active Substance: BRIMONIDINE TARTRATE
  3. RESTASIS [Concomitant]
     Active Substance: CYCLOSPORINE
     Indication: Product used for unknown indication
     Route: 065

REACTIONS (2)
  - Instillation site swelling [Unknown]
  - Reaction to preservatives [Unknown]
